FAERS Safety Report 5107548-5 (Version None)
Quarter: 2006Q3

REPORT INFORMATION
  Report Type: 
  Country: None (occurrence: None)
  Receive Date: 20060913
  Receipt Date: 20060913
  Transmission Date: 20061208
  Serious: Yes (Hospitalization)
  Sender: FDA-Public Use
  Company Number: None

PATIENT
  Sex: Male
  Weight: 91.173 kg

DRUGS (1)
  1. VALPROIC ACID [Suspect]
     Indication: KAPOSI'S SARCOMA
     Dosage: 500 MG DAILY PO
     Route: 048
     Dates: start: 20060502, end: 20060601

REACTIONS (1)
  - CELLULITIS [None]
